FAERS Safety Report 11272507 (Version 1)
Quarter: 2015Q3

REPORT INFORMATION
  Report Type: Spontaneous
  Country: US (occurrence: None)
  Receive Date: 20150713
  Receipt Date: 20150713
  Transmission Date: 20151125
  Serious: No
  Sender: FDA-Public Use
  Company Number: US-LHC-2015082

PATIENT
  Age: 29 Year
  Sex: Female

DRUGS (1)
  1. NITROGEN. [Suspect]
     Active Substance: NITROGEN
     Indication: MELANOCYTIC NAEVUS

REACTIONS (2)
  - Condition aggravated [None]
  - Melanocytic naevus [None]
